FAERS Safety Report 4893170-2 (Version None)
Quarter: 2005Q4

REPORT INFORMATION
  Report Type: 
  Country: None (occurrence: None)
  Receive Date: 20051223
  Receipt Date: 20050914
  Transmission Date: 20060501
  Serious: No
  Sender: FDA-Public Use
  Company Number: 2005PV002085

PATIENT
  Sex: Female

DRUGS (2)
  1. SYMLIN [Suspect]
     Indication: DIABETES MELLITUS INSULIN-DEPENDENT
     Dosage: 30 MCG; TID; SC; SEE IMAGE
     Route: 058
     Dates: start: 20050511, end: 20050601
  2. SYMLIN [Suspect]
     Indication: DIABETES MELLITUS INSULIN-DEPENDENT
     Dosage: 30 MCG; TID; SC; SEE IMAGE
     Route: 058
     Dates: start: 20050601

REACTIONS (1)
  - BLOOD GLUCOSE INCREASED [None]
